FAERS Safety Report 13898299 (Version 2)
Quarter: 2017Q4

REPORT INFORMATION
  Report Type: Spontaneous
  Country: US (occurrence: US)
  Receive Date: 20170823
  Receipt Date: 20171123
  Transmission Date: 20180320
  Serious: Yes (Other)
  Sender: FDA-Public Use
  Company Number: US-VISTAPHARM, INC.-VER201708-000364

PATIENT
  Age: 27 Year
  Sex: Female

DRUGS (3)
  1. MAGNESIUM SULFATE. [Concomitant]
     Active Substance: MAGNESIUM SULFATE
     Indication: PROPHYLAXIS
  2. NIFEDIPINE. [Concomitant]
     Active Substance: NIFEDIPINE
     Indication: UTERINE CONTRACTIONS ABNORMAL
  3. HYDROCODONE AND ACETAMINOPHEN [Suspect]
     Active Substance: ACETAMINOPHEN\HYDROCODONE
     Indication: TOOTHACHE

REACTIONS (6)
  - Aspartate aminotransferase increased [Unknown]
  - Exposure during pregnancy [Unknown]
  - Premature separation of placenta [Unknown]
  - Alanine aminotransferase increased [Unknown]
  - International normalised ratio increased [Unknown]
  - Overdose [Unknown]
